FAERS Safety Report 4588348-1 (Version None)
Quarter: 2005Q1

REPORT INFORMATION
  Report Type: 
  Country: None (occurrence: None)
  Receive Date: 20050215
  Receipt Date: 20050215
  Transmission Date: 20050727
  Serious: Yes (Death)
  Sender: FDA-Public Use
  Company Number: None

PATIENT
  Sex: Male
  Weight: 99 kg

DRUGS (2)
  1. CISPLATIN [Suspect]
     Indication: GASTRIC CANCER
     Dosage: 30 MG /M2 IV X ONE
     Route: 042
     Dates: start: 20041206, end: 20050207
  2. IRINOTECAN HCL [Suspect]
     Indication: GASTRIC CANCER
     Dosage: 65 MG/M2 IV X T
     Route: 042
     Dates: start: 20041216, end: 20050207

REACTIONS (5)
  - ASTHENIA [None]
  - CARDIOVASCULAR DISORDER [None]
  - DYSPNOEA [None]
  - MYOCARDIAL INFARCTION [None]
  - PULMONARY EMBOLISM [None]
